FAERS Safety Report 5878576-7 (Version None)
Quarter: 2008Q3

REPORT INFORMATION
  Report Type: 
  Country: None (occurrence: None)
  Receive Date: 20080909
  Receipt Date: 20080905
  Transmission Date: 20090109
  Serious: Yes (Other)
  Sender: FDA-Public Use
  Company Number: GXKR2008DE08490

PATIENT
  Sex: Female

DRUGS (1)
  1. SULFAMETHOXAZOLE AND TRIMETHOPRIM [Suspect]
     Indication: URINARY TRACT INFECTION
     Dosage: 1 DF,BID,ORAL
     Route: 048
     Dates: start: 20080617, end: 20080618

REACTIONS (2)
  - ARRHYTHMIA [None]
  - HYPOKALAEMIA [None]
